FAERS Safety Report 6167278-8 (Version None)
Quarter: 2009Q2

REPORT INFORMATION
  Report Type: 
  Country: None (occurrence: None)
  Receive Date: 20090424
  Receipt Date: 20090413
  Transmission Date: 20091009
  Serious: Yes (Other)
  Sender: FDA-Public Use
  Company Number: US-PFIZER INC-2007088193

PATIENT
  Sex: Male
  Weight: 92.063 kg

DRUGS (6)
  1. DILANTIN [Suspect]
     Indication: CONVULSION
     Dosage: EVERYDAY
     Route: 048
     Dates: start: 19800101
  2. DILANTIN [Suspect]
     Dosage: 200 MG, 3X/DAY
     Route: 048
  3. PHENYTOIN AND PHENYTOIN SODIUM [Suspect]
     Indication: CONVULSION
     Dosage: DAILY
  4. ACTOS [Concomitant]
  5. METFORMIN HCL [Concomitant]
  6. HYZAAR [Concomitant]

REACTIONS (6)
  - ANTICONVULSANT DRUG LEVEL BELOW THERAPEUTIC [None]
  - DIABETES MELLITUS [None]
  - ERECTILE DYSFUNCTION [None]
  - HEARING IMPAIRED [None]
  - HYPERTENSION [None]
  - RASH GENERALISED [None]
